FAERS Safety Report 25686264 (Version 1)
Quarter: 2025Q3

REPORT INFORMATION
  Report Type: Spontaneous
  Country: US (occurrence: US)
  Receive Date: 20250815
  Receipt Date: 20250815
  Transmission Date: 20251021
  Serious: Yes (Disabling, Other)
  Sender: NOVO NORDISK
  Company Number: US-NOVOPROD-1499247

PATIENT
  Sex: Female

DRUGS (1)
  1. OZEMPIC [Suspect]
     Active Substance: SEMAGLUTIDE
     Indication: Type 2 diabetes mellitus
     Dosage: 1 MG, QW
     Route: 058
     Dates: start: 2022

REACTIONS (7)
  - Cerebrovascular accident [Unknown]
  - Disability [Unknown]
  - Neuropathy peripheral [Unknown]
  - Cardiac disorder [Unknown]
  - Unevaluable event [Unknown]
  - Hypertension [Unknown]
  - Wrong technique in product usage process [Unknown]
